FAERS Safety Report 10705125 (Version 1)
Quarter: 2015Q1

REPORT INFORMATION
  Report Type: Spontaneous
  Country: US (occurrence: None)
  Receive Date: 20150108
  Receipt Date: 20150108
  Transmission Date: 20150721
  Serious: Yes (Other)
  Sender: FDA-Public Use
  Company Number: US-H14001-14-01891

PATIENT
  Age: 36 Year
  Sex: Male

DRUGS (1)
  1. LAMOTRIGINE (LAMOTRIGINE) (UNKNOWN) (LAMOTRIGINE) [Suspect]
     Active Substance: LAMOTRIGINE
     Indication: PRODUCT USED FOR UNKNOWN INDICATION
     Route: 048

REACTIONS (3)
  - Intentional overdose [None]
  - Electrocardiogram QRS complex prolonged [None]
  - Suicide attempt [None]
